FAERS Safety Report 23861384 (Version 25)
Quarter: 2025Q4

REPORT INFORMATION
  Report Type: Report from Study
  Country: US (occurrence: US)
  Receive Date: 20240516
  Receipt Date: 20251111
  Transmission Date: 20260117
  Serious: Yes (Other)
  Sender: TAKEDA
  Company Number: US-TAKEDA-2022TUS052590

PATIENT
  Age: 45 Year
  Sex: Female

DRUGS (14)
  1. LANADELUMAB [Suspect]
     Active Substance: LANADELUMAB
     Indication: Immune system disorder
     Dosage: 300 MILLIGRAM, Q2WEEKS
     Dates: start: 20220422
  2. LANADELUMAB [Suspect]
     Active Substance: LANADELUMAB
     Indication: Asthma
     Dosage: 2 MILLILITER, Q2WEEKS
     Dates: start: 20220721
  3. LANADELUMAB [Suspect]
     Active Substance: LANADELUMAB
     Indication: Idiopathic urticaria
     Dosage: 300 MILLIGRAM, Q2WEEKS
     Dates: start: 20220724
  4. LANADELUMAB [Suspect]
     Active Substance: LANADELUMAB
     Indication: Prophylaxis
     Dosage: 300 MILLIGRAM, Q2WEEKS
     Dates: start: 20220725
  5. LANADELUMAB [Suspect]
     Active Substance: LANADELUMAB
     Dosage: 300 MILLIGRAM, Q2WEEKS
     Dates: start: 20220726
  6. LANADELUMAB [Suspect]
     Active Substance: LANADELUMAB
     Dosage: 300 MILLIGRAM/2 MILLILITER, Q2WEEKS
     Dates: start: 202207
  7. LANADELUMAB [Suspect]
     Active Substance: LANADELUMAB
     Dosage: 300 MILLIGRAM, Q2WEEKS
     Dates: start: 20221007
  8. LANADELUMAB [Suspect]
     Active Substance: LANADELUMAB
     Dosage: 300 MILLIGRAM/2 MILLILITER, Q2WEEKS
  9. XOLAIR [Suspect]
     Active Substance: OMALIZUMAB
     Indication: Asthma
     Dosage: 2 DOSAGE FORM, Q2WEEKS
  10. XOLAIR [Suspect]
     Active Substance: OMALIZUMAB
     Indication: Idiopathic urticaria
  11. XOLAIR [Suspect]
     Active Substance: OMALIZUMAB
     Indication: Migraine
  12. ICATIBANT ACETATE [Concomitant]
     Active Substance: ICATIBANT ACETATE
     Dosage: UNK
  13. RINVOQ [Concomitant]
     Active Substance: UPADACITINIB
     Dosage: UNK
  14. EPINEPHRINE [Concomitant]
     Active Substance: EPINEPHRINE
     Dosage: UNK

REACTIONS (11)
  - Crohn^s disease [Unknown]
  - Stress [Unknown]
  - Pruritus [Unknown]
  - Weight decreased [Unknown]
  - Weight increased [Unknown]
  - Abdominal pain [Unknown]
  - Product dose omission issue [Unknown]
  - Hereditary angioedema [Unknown]
  - Injection site erythema [Unknown]
  - Dermatitis contact [Unknown]
  - Urticaria [Unknown]

NARRATIVE: CASE EVENT DATE: 20220729
